FAERS Safety Report 8976729 (Version 8)
Quarter: 2013Q2

REPORT INFORMATION
  Report Type: Spontaneous
  Country: US (occurrence: US)
  Receive Date: 20121220
  Receipt Date: 20130528
  Transmission Date: 20140414
  Serious: Yes (Other)
  Sender: FDA-Public Use
  Company Number: US-009507513-1212USA007587

PATIENT
  Sex: Female

DRUGS (2)
  1. FOSAMAX [Suspect]
     Indication: OSTEOPENIA
     Dosage: 5 MG, QD
     Route: 048
     Dates: start: 20060101
  2. FOSAMAX PLUS D [Suspect]
     Indication: OSTEOPENIA
     Dosage: 70 MG/2800 IU QW
     Route: 048

REACTIONS (16)
  - Osteonecrosis of jaw [Unknown]
  - Osteoporosis [Unknown]
  - Fall [Unknown]
  - Head injury [Unknown]
  - Face injury [Unknown]
  - Sinus disorder [Unknown]
  - Aortic arteriosclerosis [Unknown]
  - Gingival inflammation [Unknown]
  - Tooth loss [Unknown]
  - Gingival bleeding [Unknown]
  - Arthritis [Unknown]
  - Gingivitis [Not Recovered/Not Resolved]
  - Stomatitis [Unknown]
  - Contusion [Unknown]
  - Temporomandibular joint syndrome [Unknown]
  - Hypertonic bladder [Unknown]
